FAERS Safety Report 9729813 (Version 3)
Quarter: 2015Q3

REPORT INFORMATION
  Report Type: Spontaneous
  Country: US (occurrence: US)
  Receive Date: 20131204
  Receipt Date: 20150804
  Transmission Date: 20151125
  Serious: No
  Sender: FDA-Public Use
  Company Number: US-GILEAD-2009-0022588

PATIENT
  Age: 40 Year
  Sex: Female
  Weight: 79.38 kg

DRUGS (16)
  1. FONDAPARINUX [Concomitant]
     Active Substance: FONDAPARINUX
  2. BACLOFEN. [Concomitant]
     Active Substance: BACLOFEN
  3. COUMADIN [Concomitant]
     Active Substance: WARFARIN SODIUM
  4. GABAPENTIN. [Concomitant]
     Active Substance: GABAPENTIN
  5. VEGAN OMEGA [Concomitant]
  6. ASPIRIN. [Concomitant]
     Active Substance: ASPIRIN
  7. VITAMIN E [Concomitant]
     Active Substance: .ALPHA.-TOCOPHEROL
  8. REVATIO [Concomitant]
     Active Substance: SILDENAFIL CITRATE
  9. CHLOROPHIL [Concomitant]
  10. AZELASTINE [Concomitant]
     Active Substance: AZELASTINE
  11. LETAIRIS [Suspect]
     Active Substance: AMBRISENTAN
     Indication: PULMONARY ARTERIAL HYPERTENSION
     Route: 048
     Dates: start: 20090522, end: 200906
  12. LASIX [Concomitant]
     Active Substance: FUROSEMIDE
  13. LEVOTHYROXINE. [Concomitant]
     Active Substance: LEVOTHYROXINE
  14. LYRICA [Concomitant]
     Active Substance: PREGABALIN
  15. XANAX [Concomitant]
     Active Substance: ALPRAZOLAM
  16. SYLENIUM [Concomitant]

REACTIONS (5)
  - Joint swelling [Unknown]
  - Oedema [Unknown]
  - Abdominal discomfort [Unknown]
  - Dyspnoea [Unknown]
  - Drug ineffective [Unknown]
